FAERS Safety Report 17692352 (Version 1)
Quarter: 2020Q2

REPORT INFORMATION
  Report Type: Spontaneous
  Country: US (occurrence: US)
  Receive Date: 20200422
  Receipt Date: 20200422
  Transmission Date: 20200714
  Serious: Yes (Other)
  Sender: FDA-Public Use
  Company Number: US-PFIZER INC-2020159270

PATIENT
  Age: 89 Year
  Sex: Female

DRUGS (1)
  1. IBRANCE [Suspect]
     Active Substance: PALBOCICLIB
     Dosage: 75 MG, CYCLIC (DAILY ON DAYS 1-21, FOLLOWED BY 7 DAYS OFF)
     Route: 048
     Dates: start: 20180416

REACTIONS (3)
  - White blood cell count decreased [Unknown]
  - Sepsis [Unknown]
  - Urinary tract infection [Unknown]
